FAERS Safety Report 6262416-0 (Version None)
Quarter: 2009Q3

REPORT INFORMATION
  Report Type: 
  Country: None (occurrence: None)
  Receive Date: 20090709
  Receipt Date: 20090612
  Transmission Date: 20100115
  Serious: Yes (Death, Life-Threatening)
  Sender: FDA-Public Use
  Company Number: FR-ROCHE-629396

PATIENT
  Sex: Male
  Weight: 64 kg

DRUGS (11)
  1. RIBAVIRIN [Suspect]
     Route: 065
     Dates: start: 20081007
  2. PEG-INTERFERON ALFA 2A (RO 25-8310) [Suspect]
     Route: 065
     Dates: start: 20081007
  3. EPOETIN BETA [Suspect]
     Route: 058
     Dates: start: 20090115
  4. AVLOCARDYL [Concomitant]
     Dates: start: 20051122
  5. NORVIR [Concomitant]
     Dates: start: 20070425
  6. TELZIR [Concomitant]
     Dates: start: 20080111
  7. TRUVADA [Concomitant]
     Dates: start: 20090401
  8. NEUPOGEN [Concomitant]
     Dates: start: 20090302
  9. FUZEON [Concomitant]
     Dates: start: 20090406
  10. LORAMYC [Concomitant]
     Dates: start: 20090401
  11. TARDYFERON [Concomitant]
     Dates: start: 20090317

REACTIONS (2)
  - ENTEROCOCCAL BACTERAEMIA [None]
  - SEPTIC SHOCK [None]
